FAERS Safety Report 5073431-7 (Version None)
Quarter: 2006Q3

REPORT INFORMATION
  Report Type: 
  Country: None (occurrence: None)
  Receive Date: 20060717
  Receipt Date: 20051031
  Transmission Date: 20061208
  Serious: No
  Sender: FDA-Public Use
  Company Number: 2005002121

PATIENT
  Age: 74 Year
  Sex: Female

DRUGS (5)
  1. TARCEVA [Suspect]
     Indication: NON-SMALL CELL LUNG CANCER
     Dosage: 150 MG (QD), ORAL
     Route: 048
     Dates: start: 20050707
  2. SYNTHROID [Concomitant]
  3. WARFARIN SODIUM [Concomitant]
  4. METOPROLOL(METOPROLOL) [Concomitant]
  5. TAMOXIFEN CITRATE [Concomitant]

REACTIONS (6)
  - DIARRHOEA [None]
  - FATIGUE [None]
  - FEELING COLD [None]
  - KIDNEY INFECTION [None]
  - RASH [None]
  - UTERINE DISORDER [None]
